FAERS Safety Report 8185570-2 (Version None)
Quarter: 2012Q1

REPORT INFORMATION
  Report Type: 
  Country: None (occurrence: None)
  Receive Date: 20120305
  Receipt Date: 20120224
  Transmission Date: 20120608
  Serious: Yes (Other)
  Sender: FDA-Public Use
  Company Number: PHHY2012BR016529

PATIENT
  Sex: Female

DRUGS (2)
  1. RITALIN [Suspect]
  2. RITALIN LA [Suspect]

REACTIONS (2)
  - MATERNAL EXPOSURE DURING PREGNANCY [None]
  - HYPOGLYCAEMIA [None]
